FAERS Safety Report 12453427 (Version 2)
Quarter: 2016Q3

REPORT INFORMATION
  Report Type: Spontaneous
  Country: US (occurrence: US)
  Receive Date: 20160609
  Receipt Date: 20160728
  Transmission Date: 20161109
  Serious: Yes (Other)
  Sender: FDA-Public Use
  Company Number: US-CELGENEUS-USA-2016060998

PATIENT
  Age: 78 Year
  Sex: Male
  Weight: 81.72 kg

DRUGS (20)
  1. XGEVA [Concomitant]
     Active Substance: DENOSUMAB
     Indication: OSTEOPOROSIS
     Dosage: 120MG/1.7ML
     Route: 065
     Dates: start: 20160327
  2. PROCRIT [Concomitant]
     Active Substance: ERYTHROPOIETIN
     Indication: ANAEMIA
     Dosage: 40000 UNIT/ML
     Route: 065
     Dates: start: 20160327
  3. TAMSULOSIN [Concomitant]
     Active Substance: TAMSULOSIN
     Indication: PROSTATE CANCER
  4. REMICADE [Concomitant]
     Active Substance: INFLIXIMAB
     Indication: CROHN^S DISEASE
     Route: 041
     Dates: start: 20160327
  5. PLAVIX [Concomitant]
     Active Substance: CLOPIDOGREL BISULFATE
     Indication: CORONARY ARTERY BYPASS
     Dosage: 500 MILLIGRAM
     Route: 048
     Dates: start: 20160327
  6. ASPIRIN. [Concomitant]
     Active Substance: ASPIRIN
     Indication: CARDIAC DISORDER
     Dosage: 40 MILLIGRAM
     Route: 048
     Dates: start: 20160327
  7. REVLIMID [Suspect]
     Active Substance: LENALIDOMIDE
     Route: 048
     Dates: start: 2016
  8. SULFASALAZINE. [Concomitant]
     Active Substance: SULFASALAZINE
     Indication: RHEUMATOID ARTHRITIS
     Route: 065
     Dates: start: 20160327
  9. QUINAPRIL. [Concomitant]
     Active Substance: QUINAPRIL
     Indication: HYPERLIPIDAEMIA
  10. POTASSIUM CHLORIDE ER [Concomitant]
     Active Substance: POTASSIUM CHLORIDE
     Indication: VITAMIN SUPPLEMENTATION
     Dosage: 500 MILLIGRAM
     Route: 065
     Dates: start: 20160327
  11. PLAVIX [Concomitant]
     Active Substance: CLOPIDOGREL BISULFATE
     Indication: ANAEMIA
  12. TAMSULOSIN [Concomitant]
     Active Substance: TAMSULOSIN
     Indication: OSTEOPOROSIS
     Route: 065
     Dates: start: 20160327
  13. ATENOLOL. [Concomitant]
     Active Substance: ATENOLOL
     Indication: HYPERTENSION
     Dosage: 75 MILLIGRAM
     Route: 048
     Dates: start: 20160327
  14. IRON [Concomitant]
     Active Substance: IRON
     Indication: VITAMIN SUPPLEMENTATION
  15. REVLIMID [Suspect]
     Active Substance: LENALIDOMIDE
     Indication: PLASMA CELL MYELOMA
     Route: 048
     Dates: start: 201603
  16. LIPITOR [Concomitant]
     Active Substance: ATORVASTATIN CALCIUM
     Indication: HYPERLIPIDAEMIA
     Dosage: 5 MILLIGRAM
     Route: 048
     Dates: start: 20160327
  17. FOLIC ACID. [Concomitant]
     Active Substance: FOLIC ACID
     Indication: VITAMIN SUPPLEMENTATION
     Dosage: 20 MILLIEQUIVALENTS
     Route: 048
     Dates: start: 20160327
  18. REVLIMID [Suspect]
     Active Substance: LENALIDOMIDE
     Indication: MYELODYSPLASTIC SYNDROME
     Route: 048
     Dates: start: 20160428
  19. QUINAPRIL. [Concomitant]
     Active Substance: QUINAPRIL
     Indication: HYPERTENSION
     Route: 041
     Dates: start: 20160327
  20. IRON [Concomitant]
     Active Substance: IRON
     Indication: IRON DEFICIENCY
     Route: 048
     Dates: start: 20160327

REACTIONS (3)
  - Fatigue [Unknown]
  - Platelet count decreased [Unknown]
  - Platelet count decreased [Unknown]

NARRATIVE: CASE EVENT DATE: 20160520
